FAERS Safety Report 6697313-X (Version None)
Quarter: 2010Q2

REPORT INFORMATION
  Report Type: 
  Country: None (occurrence: None)
  Receive Date: 20100426
  Receipt Date: 20100416
  Transmission Date: 20101027
  Serious: Yes (Other)
  Sender: FDA-Public Use
  Company Number: CA-ASTRAZENECA-2010SE17502

PATIENT
  Age: 63 Year
  Sex: Female

DRUGS (6)
  1. PULMICORT [Suspect]
     Route: 055
  2. ATACAND [Suspect]
     Route: 048
  3. METOPROLOL [Suspect]
     Route: 048
  4. NORVASC [Suspect]
     Route: 048
     Dates: start: 20100412
  5. PANTOPRAZOLE [Concomitant]
  6. FLUTICASONE PROPIONATE [Concomitant]

REACTIONS (10)
  - ABDOMINAL DISTENSION [None]
  - ABDOMINAL PAIN UPPER [None]
  - ANXIETY [None]
  - ARTHRALGIA [None]
  - DEHYDRATION [None]
  - DRY MOUTH [None]
  - FLATULENCE [None]
  - INSOMNIA [None]
  - POLLAKIURIA [None]
  - SYNCOPE [None]
